FAERS Safety Report 12309561 (Version 1)
Quarter: 2016Q2

REPORT INFORMATION
  Report Type: Report from Study
  Country: BR (occurrence: BR)
  Receive Date: 20160427
  Receipt Date: 20160427
  Transmission Date: 20160815
  Serious: Yes (Hospitalization, Other)
  Sender: FDA-Public Use
  Company Number: BR-JNJFOC-20160309543

PATIENT
  Age: 31 Year
  Sex: Female
  Weight: 66 kg

DRUGS (2)
  1. REMICADE [Suspect]
     Active Substance: INFLIXIMAB
     Indication: ANKYLOSING SPONDYLITIS
     Route: 042
     Dates: start: 20160312
  2. REMICADE [Suspect]
     Active Substance: INFLIXIMAB
     Indication: ANKYLOSING SPONDYLITIS
     Dosage: 3 DOSAGE FORM
     Route: 042
     Dates: start: 20150501

REACTIONS (10)
  - Hypothermia [Unknown]
  - Infusion related reaction [Unknown]
  - Laryngeal oedema [Unknown]
  - Vomiting [Unknown]
  - Hypotension [Unknown]
  - Drug prescribing error [Unknown]
  - Pain [Unknown]
  - Off label use [Unknown]
  - Hospitalisation [Unknown]
  - Drug ineffective [Unknown]

NARRATIVE: CASE EVENT DATE: 20160312
